FAERS Safety Report 25325399 (Version 1)
Quarter: 2025Q2

REPORT INFORMATION
  Report Type: Spontaneous
  Country: US (occurrence: US)
  Receive Date: 20250516
  Receipt Date: 20250516
  Transmission Date: 20250716
  Serious: Yes (Death, Other)
  Sender: SCIEGEN PHARMACEUTICALS INC
  Company Number: US-SCIEGENP-2025SCLIT00103

PATIENT
  Age: 62 Year
  Sex: Male

DRUGS (1)
  1. ATORVASTATIN CALCIUM [Suspect]
     Active Substance: ATORVASTATIN CALCIUM
     Indication: Metabolic dysfunction-associated steatohepatitis
     Route: 065

REACTIONS (5)
  - Cardiac arrest [Fatal]
  - Hyperkalaemia [Fatal]
  - Arrhythmia [Fatal]
  - Acute kidney injury [Fatal]
  - Rhabdomyolysis [Fatal]
